FAERS Safety Report 24731929 (Version 2)
Quarter: 2024Q4

REPORT INFORMATION
  Report Type: Report from Study
  Country: DE (occurrence: DE)
  Receive Date: 20241213
  Receipt Date: 20241216
  Transmission Date: 20250114
  Serious: Yes (Hospitalization)
  Sender: NOVARTIS
  Company Number: DE-002147023-NVSC2024DE075299

PATIENT
  Sex: Female
  Weight: 67 kg

DRUGS (3)
  1. KESIMPTA [Suspect]
     Active Substance: OFATUMUMAB
     Indication: Multiple sclerosis
     Dosage: 20 MG, QMO (LAST APPLICATION BEFORE THE EVENT WAS ON 28 MAR 2024)
     Route: 058
     Dates: start: 20240222
  2. ESOMEPRAZOLE [Concomitant]
     Active Substance: ESOMEPRAZOLE
     Indication: Barrett^s oesophagus
     Dosage: 40 MG, QD
     Route: 048
     Dates: start: 20220220
  3. FOSTER [Concomitant]
     Active Substance: BECLOMETHASONE\FORMOTEROL
     Indication: Asthma
     Dosage: UNK, BID (UNKNOWN DOSING UNIT, SPRAY)
     Route: 055
     Dates: start: 20231130

REACTIONS (2)
  - Urinary tract infection [Recovered/Resolved]
  - Myoclonus [Not Recovered/Not Resolved]

NARRATIVE: CASE EVENT DATE: 20240324
